FAERS Safety Report 8474420-2 (Version None)
Quarter: 2012Q2

REPORT INFORMATION
  Report Type: 
  Country: None (occurrence: None)
  Receive Date: 20120628
  Receipt Date: 20120619
  Transmission Date: 20120825
  Serious: Yes (Other)
  Sender: FDA-Public Use
  Company Number: PHHY2012BR054143

PATIENT
  Sex: Male

DRUGS (2)
  1. INFLUENZA VIRUS VACCINE - UNKNOWN INN [Suspect]
     Indication: IMMUNISATION
     Dosage: -1 UKN
  2. FORMOTEROL FUMARATE [Suspect]

REACTIONS (4)
  - GAIT DISTURBANCE [None]
  - DYSPNOEA [None]
  - EMPHYSEMA [None]
  - PRODUCTIVE COUGH [None]
